FAERS Safety Report 11120422 (Version 1)
Quarter: 2015Q2

REPORT INFORMATION
  Report Type: Spontaneous
  Country: CO (occurrence: CO)
  Receive Date: 20150518
  Receipt Date: 20150518
  Transmission Date: 20150821
  Serious: Yes (Other)
  Sender: FDA-Public Use
  Company Number: CO-AMGEN-COLSP2015047403

PATIENT
  Age: 49 Year
  Sex: Male

DRUGS (2)
  1. ENBREL [Suspect]
     Active Substance: ETANERCEPT
     Indication: PSORIASIS
     Dosage: 50 MG, 2X/WEEK
     Route: 058
     Dates: start: 201504, end: 2015
  2. DAIVONEX [Concomitant]
     Active Substance: CALCIPOTRIENE
     Dosage: UNK

REACTIONS (6)
  - Decreased immune responsiveness [Unknown]
  - Asthenia [Unknown]
  - Insomnia [Unknown]
  - Psoriasis [Unknown]
  - Arthropathy [Unknown]
  - Varicose vein [Unknown]

NARRATIVE: CASE EVENT DATE: 2015
